FAERS Safety Report 23321908 (Version 1)
Quarter: 2023Q4

REPORT INFORMATION
  Report Type: Spontaneous
  Country: US (occurrence: None)
  Receive Date: 20231220
  Receipt Date: 20231220
  Transmission Date: 20240110
  Serious: Yes (Hospitalization)
  Sender: FDA-Public Use
  Company Number: None

PATIENT
  Sex: Male

DRUGS (3)
  1. BORTEZOMIB [Suspect]
     Active Substance: BORTEZOMIB
     Indication: Idiopathic pulmonary fibrosis
     Dosage: OTHER FREQUENCY : DAY1+DAY8 EVRY21DA;?IINJ 2.2MG UNDER THE SKIN (SUBCUTANEOUS INJECTION) ON DAY 1 AN
     Route: 058
     Dates: start: 20231121
  2. OFEV [Concomitant]
     Active Substance: NINTEDANIB
  3. THEOPHYLLINE [Concomitant]
     Active Substance: THEOPHYLLINE

REACTIONS (4)
  - Hip fracture [None]
  - Unresponsive to stimuli [None]
  - Urinary tract infection [None]
  - Confusional state [None]
